FAERS Safety Report 6399160-5 (Version None)
Quarter: 2009Q4

REPORT INFORMATION
  Report Type: 
  Country: None (occurrence: None)
  Receive Date: 20091008
  Receipt Date: 20090923
  Transmission Date: 20100525
  Serious: Yes (Death, Hospitalization)
  Sender: FDA-Public Use
  Company Number: 2008003006

PATIENT
  Age: 74 Year
  Sex: Female

DRUGS (12)
  1. ERLOTINIB          (PLACEBO [Suspect]
     Indication: NON-SMALL CELL LUNG CANCER
     Dosage: (100 MG, QD), ORAL
     Route: 048
     Dates: start: 20080221, end: 20090130
  2. VOLSAID (DICLOFENAC) [Concomitant]
  3. PARCETAMOL (PARACETAMOL) [Concomitant]
  4. CODEINE PHOSPHATE(CODEINE PHOSPHATE) [Concomitant]
  5. IMMODIUM (LOPERAMIDE HYDROCHLORIDE) [Concomitant]
  6. ATENOLOL [Concomitant]
  7. PRAVASTATIN [Concomitant]
  8. ASPIRIN [Concomitant]
  9. FUROSEMIDE [Concomitant]
  10. FLUOXETINE [Concomitant]
  11. OMEPRAZOLE [Concomitant]
  12. METOCLOPRAMIDE [Concomitant]

REACTIONS (1)
  - PULMONARY EMBOLISM [None]
